FAERS Safety Report 4658040-3 (Version None)
Quarter: 2005Q2

REPORT INFORMATION
  Report Type: 
  Country: None (occurrence: None)
  Receive Date: 20050510
  Receipt Date: 20050314
  Transmission Date: 20051028
  Serious: Yes (Disabling)
  Sender: FDA-Public Use
  Company Number: US-MERCK-0503USA02355

PATIENT
  Age: 61 Year
  Sex: Male

DRUGS (5)
  1. SINGULAIR [Suspect]
     Route: 048
  2. ALLEGRA [Concomitant]
     Route: 065
  3. NASONEX [Concomitant]
     Route: 065
  4. ACIPHEX [Concomitant]
     Route: 065
  5. NASACORT [Concomitant]
     Route: 065

REACTIONS (2)
  - SUPRAVENTRICULAR EXTRASYSTOLES [None]
  - VENTRICULAR EXTRASYSTOLES [None]
